FAERS Safety Report 4506315-0 (Version None)
Quarter: 2004Q4

REPORT INFORMATION
  Report Type: 
  Country: None (occurrence: None)
  Receive Date: 20041119
  Receipt Date: 20041116
  Transmission Date: 20050328
  Serious: Yes (Life-Threatening, Hospitalization, Disabling)
  Sender: FDA-Public Use
  Company Number: US-MERCK-0411USA02805

PATIENT
  Age: 44 Year
  Sex: Male

DRUGS (9)
  1. VIOXX [Suspect]
     Indication: PAIN MANAGEMENT
     Route: 048
     Dates: end: 20040101
  2. LASIX [Concomitant]
     Route: 065
  3. ALBUTEROL [Concomitant]
     Route: 065
  4. LISINOPRIL [Concomitant]
     Route: 065
  5. SPIRONOLACTONE [Concomitant]
     Route: 065
  6. ASPIRIN [Concomitant]
     Route: 065
  7. DIGITORA [Concomitant]
     Route: 065
  8. ZOCOR [Concomitant]
     Route: 065
  9. KARVEDILOL [Concomitant]
     Route: 065

REACTIONS (3)
  - CARDIAC FAILURE CONGESTIVE [None]
  - LIMB DISCOMFORT [None]
  - MOVEMENT DISORDER [None]
